FAERS Safety Report 7428653 (Version 6)
Quarter: 2014Q2

REPORT INFORMATION
  Report Type: Spontaneous
  Country: US (occurrence: US)
  Receive Date: 20100623
  Receipt Date: 20140422
  Transmission Date: 20141212
  Serious: Yes (Hospitalization)
  Sender: FDA-Public Use
  Company Number: US-BAYER-201025537NA

PATIENT
  Age: 28 Year
  Sex: Female
  Weight: 56 kg

DRUGS (4)
  1. YASMIN [Suspect]
     Indication: ORAL CONTRACEPTION
     Dosage: 1 UNK, UNK
     Route: 048
     Dates: start: 2000, end: 2008
  2. YAZ [Suspect]
     Indication: ORAL CONTRACEPTION
     Dosage: DAILY DOSE 1 DF
     Route: 048
     Dates: start: 2008, end: 2010
  3. EFFEXOR XR [Concomitant]
     Indication: ANXIETY
     Dosage: DAILY DOSE 150 MG
     Dates: start: 2007
  4. VENLAFAXINE [Concomitant]
     Indication: ANXIETY
     Dosage: 37.5 MG, UNK
     Dates: start: 2008

REACTIONS (5)
  - Gallbladder disorder [Unknown]
  - Cholecystitis chronic [None]
  - Abdominal pain [Unknown]
  - Hypertension [None]
  - Palpitations [None]
